FAERS Safety Report 17756548 (Version 2)
Quarter: 2020Q4

REPORT INFORMATION
  Report Type: Spontaneous
  Country: IT (occurrence: IT)
  Receive Date: 20200507
  Receipt Date: 20201012
  Transmission Date: 20210113
  Serious: Yes (Other)
  Sender: FDA-Public Use
  Company Number: IT-LUPIN PHARMACEUTICALS INC.-2020-01984

PATIENT
  Age: 38 Year
  Sex: Female

DRUGS (1)
  1. MISOPROSTOL TABLET [Suspect]
     Active Substance: MISOPROSTOL
     Indication: ABORTION INDUCED
     Dosage: UNK
     Route: 065

REACTIONS (4)
  - Self-medication [Unknown]
  - Stillbirth [Unknown]
  - Intentional product misuse [Unknown]
  - Maternal exposure during pregnancy [Unknown]
